FAERS Safety Report 5937986-X (Version None)
Quarter: 2008Q4

REPORT INFORMATION
  Report Type: 
  Country: None (occurrence: None)
  Receive Date: 20081031
  Receipt Date: 20081024
  Transmission Date: 20090506
  Serious: No
  Sender: FDA-Public Use
  Company Number: US-PFIZER INC-2008079482

PATIENT
  Sex: Male
  Weight: 61.363 kg

DRUGS (4)
  1. QUINAPRIL HCL [Suspect]
     Indication: HYPERTENSION
  2. TENORMIN [Concomitant]
  3. LIPITOR [Concomitant]
  4. ALLOPURINOL [Concomitant]

REACTIONS (1)
  - NO ADVERSE EVENT [None]
